FAERS Safety Report 8002666-6 (Version None)
Quarter: 2011Q4

REPORT INFORMATION
  Report Type: 
  Country: None (occurrence: None)
  Receive Date: 20111222
  Receipt Date: 20111214
  Transmission Date: 20120403
  Serious: Yes (Hospitalization)
  Sender: FDA-Public Use
  Company Number: US-NOVOPROD-341444

PATIENT

DRUGS (3)
  1. VICTOZA [Suspect]
     Indication: TYPE 2 DIABETES MELLITUS
     Dosage: 1.8 MG, QD
     Route: 058
     Dates: start: 20100101, end: 20111001
  2. VICTOZA [Suspect]
     Dosage: 1.8 MG, QD
     Route: 058
     Dates: start: 20111101, end: 20111214
  3. GLIMEPIRIDE [Concomitant]
     Indication: TYPE 2 DIABETES MELLITUS
     Dosage: UNKNOWN
     Route: 065

REACTIONS (2)
  - CHEST PAIN [None]
  - HAEMATOCHEZIA [None]
